FAERS Safety Report 8288075-3 (Version None)
Quarter: 2012Q2

REPORT INFORMATION
  Report Type: 
  Country: None (occurrence: None)
  Receive Date: 20120416
  Receipt Date: 20120413
  Transmission Date: 20120825
  Serious: Yes (Hospitalization, Other)
  Sender: FDA-Public Use
  Company Number: US-PFIZER INC-2012092805

PATIENT
  Sex: Female
  Weight: 68.027 kg

DRUGS (1)
  1. RAPAMUNE [Suspect]
     Indication: LUNG TRANSPLANT
     Dosage: 3 MG, DAILY
     Dates: start: 20100101

REACTIONS (1)
  - PNEUMONIA [None]
